FAERS Safety Report 9400313 (Version 2)
Quarter: 2013Q4

REPORT INFORMATION
  Report Type: Report from Study
  Country: JP (occurrence: JP)
  Receive Date: 20130715
  Receipt Date: 20131008
  Transmission Date: 20140711
  Serious: Yes (Death, Other)
  Sender: FDA-Public Use
  Company Number: JP-UCBSA-091160

PATIENT
  Age: 64 Year
  Sex: Female
  Weight: 61.7 kg

DRUGS (3)
  1. E KEPPRA [Suspect]
     Indication: PROPHYLAXIS
     Route: 048
     Dates: start: 20130213, end: 20130219
  2. DEPAKENE [Concomitant]
     Dosage: DAILY DOSE: 200 MG
     Route: 048
     Dates: start: 20130213, end: 20130219
  3. TEGRETOL [Concomitant]
     Dosage: DAILY DOSE: 400 MG
     Route: 048
     Dates: start: 20130219, end: 20130219

REACTIONS (1)
  - Pulmonary embolism [Fatal]
